FAERS Safety Report 14246954 (Version 1)
Quarter: 2017Q4

REPORT INFORMATION
  Report Type: Spontaneous
  Country: US (occurrence: US)
  Receive Date: 20171204
  Receipt Date: 20171204
  Transmission Date: 20180321
  Serious: No
  Sender: FDA-Public Use
  Company Number: US-PFIZER INC-2017516944

PATIENT
  Age: 70 Year
  Sex: Female

DRUGS (3)
  1. CODEINE [Suspect]
     Active Substance: CODEINE
     Dosage: UNK
  2. AMITRIPTYLINE [Suspect]
     Active Substance: AMITRIPTYLINE
     Dosage: UNK
  3. LYRICA [Suspect]
     Active Substance: PREGABALIN
     Dosage: UNK

REACTIONS (1)
  - Drug hypersensitivity [Unknown]
